FAERS Safety Report 11129861 (Version 3)
Quarter: 2015Q3

REPORT INFORMATION
  Report Type: Spontaneous
  Country: NO (occurrence: NO)
  Receive Date: 20150521
  Receipt Date: 20150708
  Transmission Date: 20151125
  Serious: Yes (Other)
  Sender: FDA-Public Use
  Company Number: NO-PFIZER INC-2015169782

PATIENT
  Age: 38 Year
  Sex: Male

DRUGS (3)
  1. SUBUTEX [Concomitant]
     Active Substance: BUPRENORPHINE HYDROCHLORIDE
     Dosage: 4 MG, 1X/DAY
     Route: 048
  2. VALIUM [Concomitant]
     Active Substance: DIAZEPAM
     Dosage: 10 MG, 3X/DAY
     Route: 048
  3. LYRICA [Suspect]
     Active Substance: PREGABALIN
     Dosage: 2000-4000 MG DAILY LAST 3 MONTHS
     Route: 048
     Dates: start: 201501

REACTIONS (6)
  - Drug dependence [Unknown]
  - Nausea [Unknown]
  - Impaired work ability [Unknown]
  - Chills [Unknown]
  - Drug withdrawal syndrome [Unknown]
  - Drug abuse [Unknown]

NARRATIVE: CASE EVENT DATE: 201501
